FAERS Safety Report 18728198 (Version 1)
Quarter: 2021Q1

REPORT INFORMATION
  Report Type: Spontaneous
  Country: FR (occurrence: FR)
  Receive Date: 20210112
  Receipt Date: 20210112
  Transmission Date: 20210419
  Serious: Yes (Other)
  Sender: FDA-Public Use
  Company Number: FR-AUROBINDO-AUR-APL-2021-001386

PATIENT
  Age: 27 Year
  Sex: Female
  Weight: 52.3 kg

DRUGS (3)
  1. PARACETAMOL [Suspect]
     Active Substance: ACETAMINOPHEN
     Indication: ANKYLOSING SPONDYLITIS
     Dosage: 1 GRAM, 3 TIMES A DAY
     Route: 048
     Dates: start: 202003, end: 20201218
  2. PREDNISONE. [Suspect]
     Active Substance: PREDNISONE
     Indication: ANKYLOSING SPONDYLITIS
     Dosage: 60 MILLIGRAM, ONCE A DAY
     Route: 048
     Dates: start: 202003, end: 20201216
  3. TRAMADOL HYDROCHLORIDE. [Suspect]
     Active Substance: TRAMADOL HYDROCHLORIDE
     Indication: ANKYLOSING SPONDYLITIS
     Dosage: 350 MILLIGRAM, ONCE A DAY
     Route: 048
     Dates: start: 202003, end: 20201217

REACTIONS (1)
  - Hepatocellular injury [Not Recovered/Not Resolved]

NARRATIVE: CASE EVENT DATE: 20200707
